FAERS Safety Report 5050777-X (Version None)
Quarter: 2006Q3

REPORT INFORMATION
  Report Type: 
  Country: None (occurrence: None)
  Receive Date: 20060710
  Receipt Date: 20060622
  Transmission Date: 20061208
  Serious: Yes (Hospitalization, Other)
  Sender: FDA-Public Use
  Company Number: 2006063976

PATIENT
  Age: 42 Year
  Sex: Male

DRUGS (3)
  1. ZYRTEC [Suspect]
     Indication: ILL-DEFINED DISORDER
     Dosage: ORAL
     Route: 048
  2. IBUPROFEN [Suspect]
     Indication: ILL-DEFINED DISORDER
     Dosage: ORAL
     Route: 048
  3. ALCOHOL (ALCOHOL) [Suspect]
     Indication: ILL-DEFINED DISORDER
     Dosage: ONE HALF BOTTLE, ORAL
     Route: 048

REACTIONS (6)
  - AGITATION [None]
  - ALCOHOL USE [None]
  - INCORRECT DOSE ADMINISTERED [None]
  - SOMNOLENCE [None]
  - SPEECH DISORDER [None]
  - SUICIDE ATTEMPT [None]
